FAERS Safety Report 6851145-8 (Version None)
Quarter: 2010Q3

REPORT INFORMATION
  Report Type: 
  Country: None (occurrence: None)
  Receive Date: 20100716
  Receipt Date: 20100211
  Transmission Date: 20110219
  Serious: No
  Sender: FDA-Public Use
  Company Number: US-PFIZER INC-2007091247

PATIENT
  Sex: Female

DRUGS (3)
  1. CHANTIX [Suspect]
     Indication: SMOKING CESSATION THERAPY
     Dosage: UNK
     Route: 048
     Dates: start: 20071001, end: 20080101
  2. CELEXA [Concomitant]
     Indication: DEPRESSION
     Dosage: 20 MG, 1X/DAY
     Route: 048
     Dates: start: 20000101
  3. TOPROL-XL [Concomitant]
     Indication: TACHYCARDIA
     Dosage: UNK

REACTIONS (2)
  - ABNORMAL DREAMS [None]
  - RASH [None]
